FAERS Safety Report 5510011-0 (Version None)
Quarter: 2007Q4

REPORT INFORMATION
  Report Type: 
  Country: None (occurrence: None)
  Receive Date: 20071108
  Receipt Date: 20070520
  Transmission Date: 20080405
  Serious: No
  Sender: FDA-Public Use
  Company Number: US-ABBOTT-07P-163-0369842-00

PATIENT
  Age: 55 Year
  Sex: Female
  Weight: 63.56 kg

DRUGS (2)
  1. CLARITHROMYCIN [Suspect]
     Indication: HELICOBACTER INFECTION
     Route: 048
     Dates: start: 20070301, end: 20070307
  2. ALBUTEROL [Concomitant]
     Indication: ASTHMA
     Route: 055

REACTIONS (1)
  - STOMACH DISCOMFORT [None]
